FAERS Safety Report 17805577 (Version 1)
Quarter: 2020Q2

REPORT INFORMATION
  Report Type: Spontaneous
  Country: US (occurrence: US)
  Receive Date: 20200519
  Receipt Date: 20200519
  Transmission Date: 20200714
  Serious: No
  Sender: FDA-Public Use
  Company Number: US-ASTRAZENECA-2020SE62027

PATIENT

DRUGS (2)
  1. FASLODEX [Suspect]
     Active Substance: FULVESTRANT
     Indication: BREAST CANCER
     Dosage: UNKNOWN
     Route: 030
  2. IBRANCE [Suspect]
     Active Substance: PALBOCICLIB
     Indication: BREAST CANCER
     Route: 048
     Dates: start: 20200413

REACTIONS (6)
  - Abdominal discomfort [Unknown]
  - Malaise [Unknown]
  - Alopecia [Unknown]
  - Epistaxis [Unknown]
  - Diarrhoea [Unknown]
  - Alpha-1 antitrypsin deficiency [Unknown]
